FAERS Safety Report 4449551-4 (Version None)
Quarter: 2004Q3

REPORT INFORMATION
  Report Type: 
  Country: None (occurrence: None)
  Receive Date: 20040909
  Receipt Date: 20040827
  Transmission Date: 20050211
  Serious: Yes (Hospitalization)
  Sender: FDA-Public Use
  Company Number: 2004053618

PATIENT
  Age: 37 Year
  Sex: Female
  Weight: 74.4 kg

DRUGS (5)
  1. GEODON [Suspect]
     Indication: AGITATION
     Dosage: 120 MG (40 MG, 2 IN 1 D)
     Dates: start: 20040701, end: 20040701
  2. GEODON [Suspect]
     Indication: ANXIETY
     Dosage: 120 MG (40 MG, 2 IN 1 D)
     Dates: start: 20040701, end: 20040701
  3. GEODON [Suspect]
     Indication: INSOMNIA
     Dosage: 120 MG (40 MG, 2 IN 1 D)
     Dates: start: 20040701, end: 20040701
  4. GEODON [Suspect]
     Indication: PSYCHOMOTOR HYPERACTIVITY
     Dosage: 120 MG (40 MG, 2 IN 1 D)
     Dates: start: 20040701, end: 20040701
  5. GEODON [Suspect]
     Indication: RESTLESSNESS
     Dosage: 120 MG (40 MG, 2 IN 1 D)
     Dates: start: 20040701, end: 20040701

REACTIONS (7)
  - COMA [None]
  - DRUG INEFFECTIVE [None]
  - ELECTROCARDIOGRAM QT CORRECTED INTERVAL PROLONGED [None]
  - LETHARGY [None]
  - MARKEDLY REDUCED DIETARY INTAKE [None]
  - NEUROLEPTIC MALIGNANT SYNDROME [None]
  - TREMOR [None]
